FAERS Safety Report 19118747 (Version 3)
Quarter: 2021Q2

REPORT INFORMATION
  Report Type: Report from Study
  Country: BR (occurrence: BR)
  Receive Date: 20210410
  Receipt Date: 20210514
  Transmission Date: 20210717
  Serious: Yes (Death, Hospitalization, Other)
  Sender: FDA-Public Use
  Company Number: NVSC2021BR075397

PATIENT
  Age: 66 Year
  Sex: Male
  Weight: 81 kg

DRUGS (8)
  1. ENTRESTO [Suspect]
     Active Substance: SACUBITRIL\VALSARTAN
     Indication: CARDIAC FAILURE
     Dosage: 50 MG, BID (24/26 MG)
     Route: 048
     Dates: start: 202009
  2. FUROSEMIDE. [Concomitant]
     Active Substance: FUROSEMIDE
     Dosage: 1 DF, BID
     Route: 048
  3. FUROSEMIDE. [Concomitant]
     Active Substance: FUROSEMIDE
     Indication: DIURETIC THERAPY
     Dosage: UNK
     Route: 065
  4. ENTRESTO [Suspect]
     Active Substance: SACUBITRIL\VALSARTAN
     Dosage: UNK
     Route: 065
  5. LUFTAL [Concomitant]
     Active Substance: DIMETHICONE
     Indication: FLATULENCE
     Dosage: UNK (DROPS)
     Route: 065
  6. CIPROFLOXACINO [Concomitant]
     Active Substance: CIPROFLOXACIN HYDROCHLORIDE
     Indication: DIVERTICULITIS
     Dosage: UNK
     Route: 065
     Dates: start: 202102
  7. ENTRESTO [Suspect]
     Active Substance: SACUBITRIL\VALSARTAN
     Dosage: 50 MG, BID (24/26 MG)
     Route: 048
  8. ALDACTONE [Concomitant]
     Active Substance: SPIRONOLACTONE
     Indication: PRODUCT USED FOR UNKNOWN INDICATION
     Dosage: 0.5 DF, QD
     Route: 048
     Dates: start: 20201016, end: 20210304

REACTIONS (13)
  - Blood creatinine abnormal [Recovering/Resolving]
  - Cardiogenic shock [Fatal]
  - Pain in extremity [Not Recovered/Not Resolved]
  - Inappropriate schedule of product administration [Unknown]
  - Swelling [Not Recovered/Not Resolved]
  - Cardiomyopathy [Unknown]
  - Drug interaction [Not Recovered/Not Resolved]
  - Vitamin D deficiency [Recovering/Resolving]
  - Ascites [Not Recovered/Not Resolved]
  - Liver disorder [Not Recovered/Not Resolved]
  - Abdominal pain [Not Recovered/Not Resolved]
  - Cardiac disorder [Not Recovered/Not Resolved]
  - Haemorrhoids [Not Recovered/Not Resolved]

NARRATIVE: CASE EVENT DATE: 202102
